FAERS Safety Report 24311472 (Version 2)
Quarter: 2024Q3

REPORT INFORMATION
  Report Type: Report from Study
  Country: US (occurrence: US)
  Receive Date: 20240912
  Receipt Date: 20240916
  Transmission Date: 20241016
  Serious: Yes (Other)
  Sender: JAZZ
  Company Number: US-JAZZ PHARMACEUTICALS-2024-US-014264

PATIENT
  Age: 47 Year
  Sex: Male

DRUGS (1)
  1. XYWAV [Suspect]
     Active Substance: CALCIUM OXYBATE\MAGNESIUM OXYBATE\POTASSIUM OXYBATE\SODIUM OXYBATE
     Indication: Hypersomnia
     Dosage: 2.25 GRAM, BID
     Route: 048
     Dates: start: 20240830, end: 20240902

REACTIONS (5)
  - Delirium [Unknown]
  - Feeling abnormal [Recovered/Resolved]
  - Dizziness [Unknown]
  - Sleep inertia [Unknown]
  - Dry mouth [Unknown]

NARRATIVE: CASE EVENT DATE: 20240830
